FAERS Safety Report 10915754 (Version 1)
Quarter: 2015Q1

REPORT INFORMATION
  Report Type: Report from Study
  Country: US (occurrence: US)
  Receive Date: 20150316
  Receipt Date: 20150316
  Transmission Date: 20150721
  Serious: No
  Sender: FDA-Public Use
  Company Number: US-AMGEN-USASL2015022107

PATIENT
  Age: 43 Year
  Sex: Female
  Weight: 110.66 kg

DRUGS (2)
  1. ENBREL [Suspect]
     Active Substance: ETANERCEPT
     Indication: RHEUMATOID ARTHRITIS
     Dosage: 50 MG, QWK
     Route: 058
  2. METHOTREXATE [Concomitant]
     Active Substance: METHOTREXATE
     Dosage: UNK

REACTIONS (4)
  - Sinusitis [Recovered/Resolved]
  - Viral infection [Recovered/Resolved]
  - Feeling abnormal [Unknown]
  - Infection [Unknown]

NARRATIVE: CASE EVENT DATE: 201502
